FAERS Safety Report 6331931-3 (Version None)
Quarter: 2009Q3

REPORT INFORMATION
  Report Type: 
  Country: None (occurrence: None)
  Receive Date: 20090828
  Receipt Date: 20090824
  Transmission Date: 20100115
  Serious: Yes (Other)
  Sender: FDA-Public Use
  Company Number: US-JNJCH-2009022897

PATIENT
  Age: 62 Year
  Sex: Female
  Weight: 71.7 kg

DRUGS (2)
  1. NEOSPORIN [Suspect]
     Indication: INJURY
     Dosage: TEXT:ENOUGH TO COVER TOE NAIL TWICE A DAY
     Route: 061
     Dates: start: 20090821, end: 20090823
  2. MEDICATION FOR HIGH BLOOD PRESSURE [Concomitant]
     Indication: HYPERTENSION
     Dosage: TEXT:UNSPECIFIED
     Route: 065

REACTIONS (3)
  - BLISTER INFECTED [None]
  - OFF LABEL USE [None]
  - SKIN DISORDER [None]
